FAERS Safety Report 4630267-6 (Version None)
Quarter: 2005Q2

REPORT INFORMATION
  Report Type: 
  Country: None (occurrence: None)
  Receive Date: 20050408
  Receipt Date: 20050329
  Transmission Date: 20051028
  Serious: Yes (Other)
  Sender: FDA-Public Use
  Company Number: PHBS2005US04585

PATIENT
  Age: 45 Year
  Sex: Female

DRUGS (7)
  1. PAMIDRONATE DISODIUM [Suspect]
     Dosage: UNK, UNK
     Route: 042
     Dates: start: 19970617, end: 20030603
  2. TRASTUZUMAB [Concomitant]
     Route: 065
  3. TAXANES [Concomitant]
     Route: 065
  4. RADIOTHERAPY [Concomitant]
     Dosage: LEFT HIP FOR PAINFUL LYTIC LESION
     Dates: start: 19990101
  5. RADIOTHERAPY [Concomitant]
     Dates: start: 20000101
  6. RADIOTHERAPY [Concomitant]
     Dates: start: 20020101
  7. RADIOTHERAPY [Concomitant]
     Dates: start: 20030101

REACTIONS (7)
  - HIP ARTHROPLASTY [None]
  - IMPAIRED HEALING [None]
  - OSTEOPOROSIS [None]
  - PELVIC FRACTURE [None]
  - TOOTH DISORDER [None]
  - TOOTH EXTRACTION [None]
  - TOOTH FRACTURE [None]
